FAERS Safety Report 9307930 (Version 2)
Quarter: 2013Q3

REPORT INFORMATION
  Report Type: Spontaneous
  Country: SE (occurrence: SE)
  Receive Date: 20130524
  Receipt Date: 20130701
  Transmission Date: 20140515
  Serious: Yes (Other)
  Sender: FDA-Public Use
  Company Number: SE-ROCHE-1228566

PATIENT
  Sex: Female
  Weight: 57 kg

DRUGS (17)
  1. PEGASYS [Suspect]
     Indication: HEPATITIS C
     Route: 065
     Dates: start: 20130129, end: 20130307
  2. COPEGUS [Suspect]
     Indication: HEPATITIS C
     Route: 065
     Dates: start: 20130129, end: 20130307
  3. VICTRELIS [Suspect]
     Indication: HEPATITIS C
     Route: 065
     Dates: start: 20130129, end: 20130307
  4. LORATADIN [Suspect]
     Indication: PRODUCT USED FOR UNKNOWN INDICATION
     Route: 065
  5. PROPAVAN [Concomitant]
  6. EFFEXOR [Concomitant]
     Indication: DEPRESSION
     Route: 065
  7. BEHEPAN [Concomitant]
     Indication: VITAMIN SUPPLEMENTATION
     Route: 065
  8. IDEOS [Concomitant]
  9. DUROFERON [Concomitant]
     Route: 065
  10. CONCERTA [Concomitant]
  11. MITTOVAL [Concomitant]
  12. LEVAXIN [Concomitant]
  13. XANOR [Concomitant]
  14. ZOLPIDEM [Concomitant]
  15. ADRENALIN [Concomitant]
  16. BETAPRED [Concomitant]
     Route: 065
  17. TAVEGYL [Concomitant]

REACTIONS (3)
  - Oral mucosal blistering [Recovering/Resolving]
  - Oral pain [Recovering/Resolving]
  - Oral mucosal exfoliation [Recovering/Resolving]
